FAERS Safety Report 5202342-9 (Version None)
Quarter: 2006Q4

REPORT INFORMATION
  Report Type: 
  Country: None (occurrence: None)
  Receive Date: 20061012
  Receipt Date: 20060806
  Transmission Date: 20070319
  Serious: Yes (Other)
  Sender: FDA-Public Use
  Company Number: 2006S1000150

PATIENT
  Age: 46 Year
  Sex: Male

DRUGS (6)
  1. CUBICIN [Suspect]
     Indication: PROPHYLAXIS
     Dosage: 4 MG/KG; X1; IV
     Route: 042
     Dates: start: 20060728, end: 20060728
  2. CUBICIN [Suspect]
     Indication: WOUND INFECTION STAPHYLOCOCCAL
     Dosage: 4 MG/KG; X1; IV
     Route: 042
     Dates: start: 20060728, end: 20060728
  3. INSULIN [Concomitant]
  4. QUINAPRIL [Concomitant]
  5. METOPROLOL SUCCINATE [Concomitant]
  6. ZOSYN [Concomitant]

REACTIONS (4)
  - BLOOD PRESSURE INCREASED [None]
  - CHILLS [None]
  - DYSPNOEA [None]
  - HEART RATE INCREASED [None]
